FAERS Safety Report 4721318-9 (Version None)
Quarter: 2005Q3

REPORT INFORMATION
  Report Type: 
  Country: None (occurrence: None)
  Receive Date: 20050721
  Receipt Date: 20040616
  Transmission Date: 20060218
  Serious: Yes (Hospitalization)
  Sender: FDA-Public Use
  Company Number: US-BRISTOL-MYERS SQUIBB COMPANY-12617452

PATIENT
  Age: 100 Year
  Sex: Female
  Weight: 61 kg

DRUGS (4)
  1. COUMADIN [Suspect]
     Indication: HEART RATE IRREGULAR
     Route: 048
     Dates: start: 20040201, end: 20040101
  2. ASPIRIN [Suspect]
     Dates: end: 20040101
  3. SIMVASTATIN [Concomitant]
     Dosage: FOR 4-5 YEARS
  4. NORVASC [Concomitant]

REACTIONS (1)
  - RECTAL HAEMORRHAGE [None]
